FAERS Safety Report 21207496 (Version 12)
Quarter: 2022Q4

REPORT INFORMATION
  Report Type: Report from Study
  Country: US (occurrence: None)
  Receive Date: 20220812
  Receipt Date: 20221031
  Transmission Date: 20230113
  Serious: Yes (Hospitalization)
  Sender: FDA-Public Use
  Company Number: US-Eisai Medical Research-EC-2022-121041

PATIENT
  Age: 68 Year
  Sex: Male
  Weight: 69.17 kg

DRUGS (21)
  1. LENVATINIB [Suspect]
     Active Substance: LENVATINIB
     Indication: Small cell lung cancer extensive stage
     Route: 048
     Dates: start: 20220310, end: 20220803
  2. LENVATINIB [Suspect]
     Active Substance: LENVATINIB
     Route: 048
     Dates: start: 20220810
  3. QUAVONLIMAB [Suspect]
     Active Substance: QUAVONLIMAB
     Indication: Small cell lung cancer extensive stage
     Dosage: MK-1308A 425 MG CONTAINS QUAVONLIMAB (MK-1308) 25 MG (+) PEMBROLIZUMAB (MK-3475) 400 MG
     Route: 042
     Dates: start: 20220310, end: 20220714
  4. PEMBROLIZUMAB [Suspect]
     Active Substance: PEMBROLIZUMAB
     Dosage: MK-1308A 425 MG CONTAINS QUAVONLIMAB (MK-1308) 25 MG (+) PEMBROLIZUMAB (MK-3475) 400 MG
     Route: 042
     Dates: start: 20220824
  5. TENORETIC [Concomitant]
     Active Substance: ATENOLOL\CHLORTHALIDONE
     Dates: start: 201401
  6. LEXAPRO [Concomitant]
     Active Substance: ESCITALOPRAM OXALATE
     Dates: start: 201801
  7. PROTONIX [Concomitant]
     Active Substance: PANTOPRAZOLE SODIUM
     Dates: start: 200001
  8. HERBALS\TURMERIC [Concomitant]
     Active Substance: HERBALS\TURMERIC
     Dates: start: 201901
  9. APPLE CIDER VINEGAR [Concomitant]
     Active Substance: APPLE CIDER VINEGAR
     Dates: start: 201801
  10. DESYREL [Concomitant]
     Active Substance: TRAZODONE HYDROCHLORIDE
     Dates: start: 20220508
  11. RITALIN [METHYLPHENIDATE HYDROCHLORIDE] [Concomitant]
     Dates: start: 20220601
  12. MARINOL [Concomitant]
     Active Substance: DRONABINOL
     Dates: start: 20220601
  13. DEXAMETHASONE [Concomitant]
     Active Substance: DEXAMETHASONE
     Dates: start: 20220623, end: 20220929
  14. ZINC [Concomitant]
     Active Substance: ZINC
     Dates: start: 20220623
  15. TIROSINT [Concomitant]
     Active Substance: LEVOTHYROXINE SODIUM
     Dates: start: 20220616
  16. REVATIO [Concomitant]
     Active Substance: SILDENAFIL CITRATE
     Dates: start: 201501
  17. CYANOCOBALAMIN [Concomitant]
     Active Substance: CYANOCOBALAMIN
     Dates: start: 201401
  18. CHOLECALCIFEROL [Concomitant]
     Active Substance: CHOLECALCIFEROL
     Dates: start: 201801
  19. POTASSIUM [Concomitant]
     Active Substance: POTASSIUM
     Dates: start: 20220606
  20. DIETARY SUPPLEMENT [Concomitant]
     Active Substance: DIETARY SUPPLEMENT
     Dates: start: 20220421
  21. REGLAN [Concomitant]
     Active Substance: METOCLOPRAMIDE HYDROCHLORIDE
     Dates: start: 20220804

REACTIONS (1)
  - Failure to thrive [Recovered/Resolved]

NARRATIVE: CASE EVENT DATE: 20220804
